FAERS Safety Report 20112745 (Version 1)
Quarter: 2021Q4

REPORT INFORMATION
  Report Type: Spontaneous
  Country: US (occurrence: US)
  Receive Date: 20211125
  Receipt Date: 20211125
  Transmission Date: 20220304
  Serious: No
  Sender: FDA-Public Use
  Company Number: US-ORGANON-O2111USA000418

PATIENT
  Age: 34 Year
  Sex: Female
  Weight: 107.05 kg

DRUGS (1)
  1. NEXPLANON [Suspect]
     Active Substance: ETONOGESTREL
     Dosage: 1 DOSAGE FORM, LEFT UPPER ARM
     Route: 059
     Dates: start: 20210929

REACTIONS (2)
  - Medical device site reaction [Unknown]
  - Implant site scar [Unknown]

NARRATIVE: CASE EVENT DATE: 20210101
